FAERS Safety Report 13644749 (Version 1)
Quarter: 2017Q2

REPORT INFORMATION
  Report Type: Spontaneous
  Country: US (occurrence: US)
  Receive Date: 20170612
  Receipt Date: 20170612
  Transmission Date: 20170830
  Serious: No
  Sender: FDA-Public Use
  Company Number: US-ROCHE-1375915

PATIENT
  Sex: Female

DRUGS (2)
  1. XELODA [Suspect]
     Active Substance: CAPECITABINE
     Indication: BREAST CANCER
     Dosage: 1500MG TWICE A DAY
     Route: 048
     Dates: start: 20140330
  2. XGEVA [Concomitant]
     Active Substance: DENOSUMAB
     Route: 065

REACTIONS (2)
  - Headache [Unknown]
  - Feeling abnormal [Unknown]
